FAERS Safety Report 18695722 (Version 2)
Quarter: 2021Q1

REPORT INFORMATION
  Report Type: Spontaneous
  Country: US (occurrence: US)
  Receive Date: 20210104
  Receipt Date: 20210114
  Transmission Date: 20210419
  Serious: No
  Sender: FDA-Public Use
  Company Number: US-PFIZER INC-2019314998

PATIENT
  Age: 57 Year

DRUGS (1)
  1. PRISTIQ EXTENDED?RELEASE [Suspect]
     Active Substance: DESVENLAFAXINE SUCCINATE
     Dosage: 150 MG, DAILY

REACTIONS (4)
  - Mental disability [Unknown]
  - Intentional product use issue [Unknown]
  - Product dose omission in error [Unknown]
  - Dizziness [Unknown]
